FAERS Safety Report 15796759 (Version 1)
Quarter: 2019Q1

REPORT INFORMATION
  Report Type: Report from Study
  Country: US (occurrence: US)
  Receive Date: 20190108
  Receipt Date: 20190108
  Transmission Date: 20190417
  Serious: Yes (Death)
  Sender: FDA-Public Use
  Company Number: US-TEVA-2019-US-994773

PATIENT
  Age: 27 Year
  Sex: Female

DRUGS (3)
  1. ALPRAZOLAM. [Suspect]
     Active Substance: ALPRAZOLAM
     Indication: COMPLETED SUICIDE
     Route: 065
  2. BUPROPION. [Suspect]
     Active Substance: BUPROPION
     Indication: COMPLETED SUICIDE
     Route: 048
  3. OXYCODONE [Suspect]
     Active Substance: OXYCODONE
     Indication: COMPLETED SUICIDE
     Route: 065

REACTIONS (3)
  - Completed suicide [Fatal]
  - Overdose [Fatal]
  - Toxicity to various agents [Fatal]
